FAERS Safety Report 19090277 (Version 1)
Quarter: 2021Q2

REPORT INFORMATION
  Report Type: Spontaneous
  Country: FR (occurrence: FR)
  Receive Date: 20210404
  Receipt Date: 20210404
  Transmission Date: 20210717
  Serious: Yes (Other)
  Sender: FDA-Public Use
  Company Number: FR-CELLTRION INC.-2020FR023078

PATIENT

DRUGS (1)
  1. RITUXIMAB (UNKNOWN) [Suspect]
     Active Substance: RITUXIMAB
     Indication: RHEUMATOID ARTHRITIS
     Dosage: 1 G (TWO INFUSION OF 1 G RTX AT TWO?WEEK INTERVALS)
     Route: 065
     Dates: start: 201007

REACTIONS (2)
  - Oral herpes [Unknown]
  - Osteonecrosis of jaw [Unknown]
